FAERS Safety Report 9542982 (Version 1)
Quarter: 2013Q3

REPORT INFORMATION
  Report Type: Spontaneous
  Country: US (occurrence: US)
  Receive Date: 20130923
  Receipt Date: 20130923
  Transmission Date: 20140515
  Serious: Yes (Hospitalization)
  Sender: FDA-Public Use
  Company Number: US-GALDERMA-US13002893

PATIENT
  Age: 49 Year
  Sex: Female
  Weight: 96 kg

DRUGS (5)
  1. ORACEA (DOXYCYCLINE, USP) CAPSULES 40 MG [Suspect]
     Indication: ROSACEA
     Route: 061
     Dates: start: 2010, end: 201307
  2. ORACEA (DOXYCYCLINE, USP) CAPSULES 40 MG [Suspect]
     Indication: OCULAR ROSACEA
     Route: 048
     Dates: start: 201307, end: 201307
  3. ORACEA (DOXYCYCLINE, USP) CAPSULES 40 MG [Suspect]
     Route: 048
     Dates: start: 201307, end: 201309
  4. GENERIC SYNTHROID [Concomitant]
     Indication: HYPOTHYROIDISM
     Route: 048
  5. UNSPECIFIED LOTION [Concomitant]
     Indication: ROSACEA
     Route: 061

REACTIONS (9)
  - Vitamin B12 deficiency [Unknown]
  - Muscular weakness [Not Recovered/Not Resolved]
  - Muscle twitching [Not Recovered/Not Resolved]
  - Syncope [Recovered/Resolved]
  - Vision blurred [Recovered/Resolved]
  - Paraesthesia [Recovered/Resolved]
  - Hypoaesthesia [Not Recovered/Not Resolved]
  - Dizziness [Recovered/Resolved]
  - Sensory disturbance [Unknown]
